FAERS Safety Report 5581975-4 (Version None)
Quarter: 2008Q1

REPORT INFORMATION
  Report Type: 
  Country: None (occurrence: None)
  Receive Date: 20080104
  Receipt Date: 20071228
  Transmission Date: 20080703
  Serious: Yes (Other)
  Sender: FDA-Public Use
  Company Number: B0501574A

PATIENT
  Age: 76 Year
  Sex: Female

DRUGS (2)
  1. AUGMENTIN '125' [Suspect]
     Dosage: 2G UNKNOWN
     Route: 048
     Dates: start: 20071122
  2. DICLOFENAC SODIUM [Suspect]
     Indication: PAIN
     Dosage: 200MG UNKNOWN
     Route: 048
     Dates: start: 20071122

REACTIONS (1)
  - VASCULITIS [None]
